FAERS Safety Report 11626339 (Version 1)
Quarter: 2015Q4

REPORT INFORMATION
  Report Type: Spontaneous
  Country: US (occurrence: US)
  Receive Date: 20151013
  Receipt Date: 20151013
  Transmission Date: 20160304
  Serious: No
  Sender: FDA-Public Use
  Company Number: US-ROCHE-1521610

PATIENT
  Sex: Male

DRUGS (3)
  1. DIOVAN [Concomitant]
     Active Substance: VALSARTAN
  2. LISINOPRIL. [Concomitant]
     Active Substance: LISINOPRIL
  3. NAPROXEN. [Suspect]
     Active Substance: NAPROXEN
     Indication: PRODUCT USED FOR UNKNOWN INDICATION
     Route: 065

REACTIONS (9)
  - Urticaria [Unknown]
  - Swollen tongue [Unknown]
  - Rash [Unknown]
  - Hypertension [Unknown]
  - Eye swelling [Unknown]
  - Back disorder [Unknown]
  - Lip swelling [Unknown]
  - Dizziness [Unknown]
  - Dyspnoea [Unknown]
